FAERS Safety Report 15526830 (Version 1)
Quarter: 2018Q4

REPORT INFORMATION
  Report Type: Spontaneous
  Country: SI (occurrence: SI)
  Receive Date: 20181018
  Receipt Date: 20181018
  Transmission Date: 20190205
  Serious: Yes (Other)
  Sender: FDA-Public Use
  Company Number: SI-ALLERGAN-1849572US

PATIENT
  Age: 61 Year
  Sex: Male

DRUGS (1)
  1. OZURDEX [Suspect]
     Active Substance: DEXAMETHASONE
     Indication: DIABETIC RETINAL OEDEMA
     Dosage: 700 MIKROGRAMOV; INJEKTOR
     Route: 031
     Dates: start: 20180329, end: 20180329

REACTIONS (1)
  - Serous retinal detachment [Recovering/Resolving]

NARRATIVE: CASE EVENT DATE: 20181001
